FAERS Safety Report 21644740 (Version 1)
Quarter: 2022Q4

REPORT INFORMATION
  Report Type: Spontaneous
  Country: JP (occurrence: JP)
  Receive Date: 20221125
  Receipt Date: 20221125
  Transmission Date: 20230112
  Serious: Yes (Death, Hospitalization, Other)
  Sender: FDA-Public Use
  Company Number: JP-TAKEDA-2013TJP002824

PATIENT
  Age: 80 Year
  Sex: Male

DRUGS (5)
  1. SITAGLIPTIN [Suspect]
     Active Substance: SITAGLIPTIN
     Indication: Type 2 diabetes mellitus
     Dosage: 50 MILLIGRAM, QD
     Dates: start: 20130821, end: 20130920
  2. ALOGLIPTIN BENZOATE\PIOGLITAZONE HYDROCHLORIDE [Suspect]
     Active Substance: ALOGLIPTIN BENZOATE\PIOGLITAZONE HYDROCHLORIDE
     Indication: Type 2 diabetes mellitus
     Dosage: COMBINATION TABLETS LD; 1 DF, DAY
     Dates: start: 20130620
  3. ALOGLIPTIN BENZOATE\PIOGLITAZONE HYDROCHLORIDE [Suspect]
     Active Substance: ALOGLIPTIN BENZOATE\PIOGLITAZONE HYDROCHLORIDE
     Dosage: COMBINATION TABLETS LD; 1 DF, DAY
     Dates: start: 20130919, end: 20130920
  4. VOGLIBOSE [Suspect]
     Active Substance: VOGLIBOSE
     Indication: Type 2 diabetes mellitus
     Dosage: 0.3 MILLIGRAM, TID
     Dates: start: 20130814, end: 20130920
  5. MIGLITOL [Concomitant]
     Active Substance: MIGLITOL
     Dosage: 50 MILLIGRAM, TID
     Dates: start: 20130620, end: 20130813

REACTIONS (1)
  - Intestinal obstruction [Fatal]

NARRATIVE: CASE EVENT DATE: 20130921
